FAERS Safety Report 5455001-1 (Version None)
Quarter: 2007Q3

REPORT INFORMATION
  Report Type: 
  Country: None (occurrence: None)
  Receive Date: 20070913
  Receipt Date: 20070910
  Transmission Date: 20080115
  Serious: Yes (Hospitalization)
  Sender: FDA-Public Use
  Company Number: E2020-01251-SPO-JP

PATIENT
  Age: 82 Year
  Sex: Female
  Weight: 45.5 kg

DRUGS (6)
  1. ARICEPT [Suspect]
     Indication: DEMENTIA ALZHEIMER'S TYPE
     Dosage: 5 MG, 1 IN 1 D, ORAL
     Route: 048
     Dates: start: 20070415, end: 20070511
  2. NORVASC [Concomitant]
  3. ALDACTONE [Concomitant]
  4. MUCOSTA (REBAMIPIDE) [Concomitant]
  5. BREDININ (MIZORIBINE) [Concomitant]
  6. TEPRENONE (TEPRENONE) [Concomitant]

REACTIONS (3)
  - COORDINATION ABNORMAL [None]
  - GASTROENTERITIS [None]
  - RHABDOMYOLYSIS [None]
